FAERS Safety Report 4924267-6 (Version None)
Quarter: 2006Q1

REPORT INFORMATION
  Report Type: 
  Country: None (occurrence: None)
  Receive Date: 20060221
  Receipt Date: 20060208
  Transmission Date: 20060701
  Serious: Yes (Other)
  Sender: FDA-Public Use
  Company Number: 2006020041

PATIENT
  Sex: Male
  Weight: 87.0906 kg

DRUGS (5)
  1. LIPITOR [Suspect]
     Indication: BLOOD CHOLESTEROL
     Dosage: 10 MG (10 MG, 1 IN 1 D),
     Dates: end: 20050101
  2. ACTOS [Suspect]
     Indication: DIABETES MELLITUS
  3. CRESTOR [Suspect]
     Indication: ILL-DEFINED DISORDER
     Dates: start: 20050101, end: 20050101
  4. DRUG USED IN DIABETES (DRUG USED IN DIABETES) [Concomitant]
  5. ALL OTHER THERAPEUTIC PRODUCTS (ALL OTHER THERAPEUTIC PRODUCTS) [Concomitant]

REACTIONS (6)
  - DIFFICULTY IN WALKING [None]
  - EXTRASYSTOLES [None]
  - HEART RATE IRREGULAR [None]
  - MUSCLE SPASMS [None]
  - MUSCLE STRAIN [None]
  - MYALGIA [None]
